FAERS Safety Report 8534327 (Version 2)
Quarter: 2013Q2

REPORT INFORMATION
  Report Type: Spontaneous
  Country: CA (occurrence: CA)
  Receive Date: 20120427
  Receipt Date: 20130619
  Transmission Date: 20140414
  Serious: Yes (Hospitalization)
  Sender: FDA-Public Use
  Company Number: CA-JNJFOC-20120408531

PATIENT
  Age: 63 Year
  Sex: Male
  Weight: 160 kg

DRUGS (6)
  1. REMICADE [Suspect]
     Indication: CROHN^S DISEASE
     Dosage: 5MG/KG
     Route: 042
     Dates: start: 20110121, end: 20110808
  2. PURINETHOL [Concomitant]
     Indication: CROHN^S DISEASE
     Route: 065
     Dates: start: 200211, end: 201108
  3. PREDNISONE [Concomitant]
     Indication: CROHN^S DISEASE
     Dosage: TOOK ON AND OFF
     Route: 065
     Dates: start: 200211, end: 201108
  4. CALCIUM [Concomitant]
     Indication: PROPHYLAXIS
     Route: 065
  5. VITAMIN D [Concomitant]
     Indication: PROPHYLAXIS
     Route: 065
  6. ACTONEL [Concomitant]
     Indication: PROPHYLAXIS
     Route: 065

REACTIONS (2)
  - Small intestine adenocarcinoma [Recovering/Resolving]
  - Metastases to liver [Recovering/Resolving]
